FAERS Safety Report 6466496-9 (Version None)
Quarter: 2009Q4

REPORT INFORMATION
  Report Type: 
  Country: None (occurrence: None)
  Receive Date: 20091118
  Receipt Date: 20090707
  Transmission Date: 20100525
  Serious: Yes (Hospitalization)
  Sender: FDA-Public Use
  Company Number: 2009BI020825

PATIENT
  Age: 25 Year
  Sex: Male

DRUGS (4)
  1. TYSABRI [Suspect]
     Indication: MULTIPLE SCLEROSIS
     Dosage: 300 MG;QM; IV
     Route: 042
     Dates: start: 20070305
  2. AVONEX (PREV.) [Concomitant]
  3. REBIF (PREV.) [Concomitant]
  4. NOVANTRONE (PREV.) [Concomitant]

REACTIONS (2)
  - CYSTITIS [None]
  - PYREXIA [None]
